FAERS Safety Report 7571947-2 (Version None)
Quarter: 2011Q2

REPORT INFORMATION
  Report Type: 
  Country: None (occurrence: None)
  Receive Date: 20110624
  Receipt Date: 20110303
  Transmission Date: 20111010
  Serious: No
  Sender: FDA-Public Use
  Company Number: A0916448A

PATIENT
  Sex: Female

DRUGS (3)
  1. VERAMYST [Suspect]
     Dosage: 2SPR PER DAY
     Route: 045
     Dates: start: 20100601
  2. VITAMIN D [Concomitant]
  3. MULTI-VITAMINS [Concomitant]

REACTIONS (3)
  - EPISTAXIS [None]
  - NASAL DISCOMFORT [None]
  - SINUSITIS [None]
